FAERS Safety Report 7880234-4 (Version None)
Quarter: 2011Q4

REPORT INFORMATION
  Report Type: 
  Country: None (occurrence: None)
  Receive Date: 20111101
  Receipt Date: 20111026
  Transmission Date: 20120403
  Serious: No
  Sender: FDA-Public Use
  Company Number: US-PFIZER INC-2011262379

PATIENT
  Sex: Female

DRUGS (2)
  1. AROMASIN [Suspect]
     Dosage: UNK
  2. ANASTROZOLE [Suspect]
     Dosage: UNK

REACTIONS (2)
  - BACK PAIN [None]
  - PAIN [None]
